FAERS Safety Report 20911569 (Version 1)
Quarter: 2022Q2

REPORT INFORMATION
  Report Type: Spontaneous
  Country: DE (occurrence: DE)
  Receive Date: 20220603
  Receipt Date: 20220603
  Transmission Date: 20220720
  Serious: Yes (Hospitalization, Other)
  Sender: FDA-Public Use
  Company Number: DE-ELI_LILLY_AND_COMPANY-DE202205010479

PATIENT
  Age: 57 Year
  Sex: Female

DRUGS (3)
  1. ABEMACICLIB [Suspect]
     Active Substance: ABEMACICLIB
     Indication: Breast cancer metastatic
     Dosage: UNK UNK, UNKNOWN
     Route: 048
     Dates: start: 202009, end: 202108
  2. CAPECITABINE [Suspect]
     Active Substance: CAPECITABINE
     Indication: Metastasis
     Dosage: UNK UNK, UNKNOWN
     Route: 065
     Dates: start: 2021
  3. AVASTIN [Suspect]
     Active Substance: BEVACIZUMAB
     Indication: Metastasis
     Dosage: UNK UNK, UNKNOWN
     Route: 065
     Dates: start: 2021

REACTIONS (2)
  - Myelodysplastic syndrome [Not Recovered/Not Resolved]
  - Malignant neoplasm progression [Unknown]
